FAERS Safety Report 23915834 (Version 3)
Quarter: 2024Q3

REPORT INFORMATION
  Report Type: Spontaneous
  Country: US (occurrence: US)
  Receive Date: 20240529
  Receipt Date: 20240814
  Transmission Date: 20241016
  Serious: No
  Sender: INCYTE
  Company Number: US-INCYTE CORPORATION-2024IN005504

PATIENT

DRUGS (2)
  1. JAKAFI [Suspect]
     Active Substance: RUXOLITINIB
     Indication: Myelofibrosis
     Dosage: 10 MILLIGRAM, BID, TAKE 12 HOURS APART. TAKE WITH OR WITHOUT FOOD.
     Route: 048
     Dates: start: 20240316
  2. JAKAFI [Suspect]
     Active Substance: RUXOLITINIB
     Dosage: 5 MILLIGRAM, BID, TAKE TABLET (5 MG) BY MOUTH TWICE DAILY AT LEAST 12 HOURS APART. MAY BE TAKEN WITH
     Route: 048
     Dates: start: 20240523

REACTIONS (3)
  - Fatigue [Unknown]
  - Back pain [Unknown]
  - Dizziness [Unknown]
